FAERS Safety Report 5045822-1 (Version None)
Quarter: 2006Q2

REPORT INFORMATION
  Report Type: 
  Country: None (occurrence: None)
  Receive Date: 20060601
  Receipt Date: 20060404
  Transmission Date: 20061013
  Serious: No
  Sender: FDA-Public Use
  Company Number: 2006-BP-00024BP

PATIENT
  Age: 68 Year
  Sex: Female
  Weight: 56.4 kg

DRUGS (9)
  1. SPIRIVA [Suspect]
     Indication: CHRONIC OBSTRUCTIVE PULMONARY DISEASE
     Dosage: 18 MCG (18 MCG, 1 IN 1 D), IH
     Route: 055
     Dates: start: 20050401
  2. SPIRIVA [Suspect]
     Indication: DYSPNOEA
     Dosage: 18 MCG (18 MCG, 1 IN 1 D), IH
     Route: 055
     Dates: start: 20050401
  3. SPIRIVA [Suspect]
     Indication: EMPHYSEMA
     Dosage: 18 MCG (18 MCG, 1 IN 1 D), IH
     Route: 055
     Dates: start: 20050401
  4. VERAPAMIL [Concomitant]
  5. DIAZIDE (GLICLAZIDE) [Concomitant]
  6. PROTONIX [Concomitant]
  7. FORADIL [Concomitant]
  8. ALBUTEROL SPIROS [Concomitant]
  9. PRIMIDONE [Concomitant]

REACTIONS (3)
  - CHOKING SENSATION [None]
  - DRUG EFFECT DECREASED [None]
  - DYSPNOEA [None]
